FAERS Safety Report 6686764-5 (Version None)
Quarter: 2010Q2

REPORT INFORMATION
  Report Type: 
  Country: None (occurrence: None)
  Receive Date: 20100419
  Receipt Date: 20100407
  Transmission Date: 20101027
  Serious: Yes (Other)
  Sender: FDA-Public Use
  Company Number: IN-SANOFI-AVENTIS-2010SA020480

PATIENT
  Age: 30 Year
  Sex: Female
  Weight: 40 kg

DRUGS (1)
  1. ALLEGRA [Suspect]
     Indication: URTICARIA
     Route: 048

REACTIONS (1)
  - ABORTION SPONTANEOUS [None]
